FAERS Safety Report 24891558 (Version 2)
Quarter: 2025Q1

REPORT INFORMATION
  Report Type: Spontaneous
  Country: CN (occurrence: CN)
  Receive Date: 20250127
  Receipt Date: 20250130
  Transmission Date: 20250409
  Serious: Yes (Hospitalization, Other)
  Sender: ASTELLAS
  Company Number: CN-ASTELLAS-2025-AER-004878

PATIENT
  Age: 68 Year
  Sex: Male
  Weight: 50 kg

DRUGS (6)
  1. PROGRAF [Interacting]
     Active Substance: TACROLIMUS
     Indication: Chronic kidney disease
     Route: 048
     Dates: start: 20250103, end: 20250115
  2. PROGRAF [Interacting]
     Active Substance: TACROLIMUS
     Indication: Pneumonia
     Dosage: NASAL FEEDING
     Route: 045
     Dates: start: 20250115, end: 20250120
  3. PROGRAF [Interacting]
     Active Substance: TACROLIMUS
     Indication: Urinary tract infection
  4. VORICONAZOLE [Interacting]
     Active Substance: VORICONAZOLE
     Indication: Chronic kidney disease
     Route: 042
     Dates: start: 20250117, end: 20250121
  5. VORICONAZOLE [Interacting]
     Active Substance: VORICONAZOLE
     Indication: Bronchopulmonary aspergillosis
  6. SODIUM CHLORIDE [Concomitant]
     Active Substance: SODIUM CHLORIDE
     Indication: Chronic kidney disease
     Route: 042
     Dates: start: 20250117, end: 20250121

REACTIONS (3)
  - Immunosuppressant drug level increased [Recovering/Resolving]
  - Drug interaction [Recovering/Resolving]
  - Off label use [Unknown]

NARRATIVE: CASE EVENT DATE: 20250103
